FAERS Safety Report 9404427 (Version 2)
Quarter: 2013Q4

REPORT INFORMATION
  Report Type: Spontaneous
  Country: US (occurrence: None)
  Receive Date: 20130715
  Receipt Date: 20131101
  Transmission Date: 20140711
  Serious: Yes (Other)
  Sender: FDA-Public Use
  Company Number: ACO_37207_2013

PATIENT
  Age: 72 Year
  Sex: Male
  Weight: 140.6 kg

DRUGS (12)
  1. AMPYRA [Suspect]
     Indication: GAIT DISTURBANCE
     Route: 048
     Dates: start: 20130625
  2. COUMADIN (WARFARIN SODIUM) [Concomitant]
  3. TOPROL (METOPROLOL SUCCINATE) [Concomitant]
  4. COREG (CARVEDILOL) [Concomitant]
  5. LOPID (GEMFIBROZIL) [Concomitant]
  6. GLIPIZIDE (GLIPIZIDE) [Concomitant]
  7. METFORMIN (METFORMIN) [Concomitant]
  8. FLOMAX (TAMSULOSIN HYROCHLORIDE) [Concomitant]
  9. AVIDART (DUTASTERIDE) [Concomitant]
  10. ZOCOR (SIMVASTATIN) [Concomitant]
  11. BABY ASPIRIN (ACETYLSALICYLIC ACID) [Concomitant]
  12. VITAMIN D3 (COLECALCIFEROL) [Concomitant]

REACTIONS (2)
  - International normalised ratio increased [None]
  - Blood pressure increased [None]
